FAERS Safety Report 9019894 (Version 1)
Quarter: 2013Q1

REPORT INFORMATION
  Report Type: Spontaneous
  Country: IR (occurrence: IR)
  Receive Date: 20130118
  Receipt Date: 20130118
  Transmission Date: 20140127
  Serious: Yes (Hospitalization)
  Sender: FDA-Public Use
  Company Number: IR-JNJFOC-20130107419

PATIENT
  Age: 79 Year
  Sex: Male

DRUGS (2)
  1. TOPIRAMATE [Suspect]
     Indication: ESSENTIAL TREMOR
     Route: 048
  2. PROPRANOLOL [Concomitant]
     Indication: EYE DISORDER
     Route: 065

REACTIONS (1)
  - Choroidal detachment [Recovered/Resolved]
